FAERS Safety Report 4850123-8 (Version None)
Quarter: 2005Q4

REPORT INFORMATION
  Report Type: 
  Country: None (occurrence: None)
  Receive Date: 20051123
  Receipt Date: 20050514
  Transmission Date: 20060501
  Serious: Yes (Other)
  Sender: FDA-Public Use
  Company Number: 2005056111

PATIENT
  Age: 69 Year
  Sex: Female

DRUGS (5)
  1. LIPITOR [Suspect]
     Indication: HYPERCHOLESTEROLAEMIA
     Dosage: 80 MG (80 MG, 1 IN 1 D), ORAL
     Route: 048
     Dates: start: 20041004, end: 20050302
  2. NORVASC [Concomitant]
  3. GLIPIZIDE [Concomitant]
  4. COZAAR [Concomitant]
  5. AMITRIPTYLINE (AMITRIPTYLINE) [Concomitant]

REACTIONS (5)
  - CHROMATURIA [None]
  - FAECES DISCOLOURED [None]
  - JAUNDICE [None]
  - LIVER FUNCTION TEST ABNORMAL [None]
  - MALAISE [None]
